FAERS Safety Report 17156240 (Version 1)
Quarter: 2019Q4

REPORT INFORMATION
  Report Type: Spontaneous
  Country: US (occurrence: US)
  Receive Date: 20191216
  Receipt Date: 20191216
  Transmission Date: 20200122
  Serious: Yes (Death, Other)
  Sender: FDA-Public Use
  Company Number: US-009507513-1912USA004373

PATIENT
  Age: 70 Year
  Sex: Female

DRUGS (5)
  1. AMLODIPINE [Suspect]
     Active Substance: AMLODIPINE BESYLATE
  2. PRINIVIL [Suspect]
     Active Substance: LISINOPRIL
     Dosage: ROUTE: INGESTION
  3. TEMAZEPAM. [Suspect]
     Active Substance: TEMAZEPAM
     Dosage: ROUTE: INGESTION
  4. ALPRAZOLAM. [Suspect]
     Active Substance: ALPRAZOLAM
     Dosage: ROUTE: INGESTION
  5. METOPROLOL. [Suspect]
     Active Substance: METOPROLOL
     Dosage: ROUTE: INGESTION

REACTIONS (1)
  - Suspected suicide [Fatal]
